FAERS Safety Report 24062743 (Version 1)
Quarter: 2024Q3

REPORT INFORMATION
  Report Type: Spontaneous
  Country: US (occurrence: US)
  Receive Date: 20240708
  Receipt Date: 20240708
  Transmission Date: 20241017
  Serious: No
  Sender: BAUSCH AND LOMB
  Company Number: US-BAUSCHBL-2024BNL029448

PATIENT
  Age: 86 Year
  Sex: Male

DRUGS (1)
  1. LATANOPROST [Suspect]
     Active Substance: LATANOPROST
     Indication: Glaucoma
     Route: 065

REACTIONS (4)
  - Product delivery mechanism issue [Unknown]
  - Exposure via skin contact [Unknown]
  - Accidental exposure to product [Unknown]
  - Product use issue [Unknown]
